FAERS Safety Report 6095233-5 (Version None)
Quarter: 2009Q1

REPORT INFORMATION
  Report Type: 
  Country: None (occurrence: None)
  Receive Date: 20090227
  Receipt Date: 20080218
  Transmission Date: 20090719
  Serious: No
  Sender: FDA-Public Use
  Company Number: A0710247A

PATIENT
  Age: 7 Year
  Sex: Male

DRUGS (4)
  1. LAMICTAL [Suspect]
     Indication: EPILEPSY
     Dosage: 25MG IN THE MORNING
     Route: 048
     Dates: start: 20071110
  2. LAMOTRIGINE [Suspect]
     Indication: EPILEPSY
     Dosage: 5MG AT NIGHT
     Route: 048
     Dates: start: 20080201
  3. SINGULAIR [Concomitant]
  4. MULTI-VITAMIN [Concomitant]

REACTIONS (1)
  - RASH PRURITIC [None]
